FAERS Safety Report 4919269-X (Version None)
Quarter: 2006Q1

REPORT INFORMATION
  Report Type: 
  Country: None (occurrence: None)
  Receive Date: 20060215
  Receipt Date: 20060207
  Transmission Date: 20060701
  Serious: Yes (Death)
  Sender: FDA-Public Use
  Company Number: 163-20785-06010401

PATIENT
  Age: 69 Year
  Sex: Female

DRUGS (2)
  1. THALOMID [Suspect]
     Indication: BONE NEOPLASM MALIGNANT
     Dosage: 100-400 MG DAILY, ORAL
     Route: 048
     Dates: start: 20050201, end: 20051201
  2. THALOMID [Suspect]
     Indication: MULTIPLE MYELOMA
     Dosage: 100-400 MG DAILY, ORAL
     Route: 048
     Dates: start: 20050201, end: 20051201

REACTIONS (2)
  - HEPATIC FAILURE [None]
  - RENAL FAILURE [None]
